FAERS Safety Report 8121629-3 (Version None)
Quarter: 2012Q1

REPORT INFORMATION
  Report Type: 
  Country: None (occurrence: None)
  Receive Date: 20120208
  Receipt Date: 20120208
  Transmission Date: 20120608
  Serious: Yes (Life-Threatening)
  Sender: FDA-Public Use
  Company Number: None

PATIENT
  Age: 61 Year
  Sex: Male
  Weight: 151.95 kg

DRUGS (1)
  1. METHOTREXATE [Suspect]
     Indication: RHEUMATOID ARTHRITIS
     Dosage: 12 X 2.5 MG
     Route: 048
     Dates: start: 20120124, end: 20120131

REACTIONS (2)
  - PRODUCT SUBSTITUTION ISSUE [None]
  - MALAISE [None]
